FAERS Safety Report 4317212-8 (Version None)
Quarter: 2004Q1

REPORT INFORMATION
  Report Type: 
  Country: None (occurrence: None)
  Receive Date: 20040312
  Receipt Date: 20040224
  Transmission Date: 20041129
  Serious: Yes (Hospitalization, Other)
  Sender: FDA-Public Use
  Company Number: 189592

PATIENT
  Age: 73 Year
  Sex: Female

DRUGS (7)
  1. AVONEX [Suspect]
     Indication: MULTIPLE SCLEROSIS
     Dosage: 30 MCG QW IM
     Route: 030
     Dates: start: 20010101
  2. SYNTHROID [Concomitant]
  3. ADVIL [Concomitant]
  4. BACLOFEN [Concomitant]
  5. COREG [Concomitant]
  6. MODAFINIL [Concomitant]
  7. MINOCYCLINE HCL [Concomitant]

REACTIONS (11)
  - ATRIAL FIBRILLATION [None]
  - BALANCE DISORDER [None]
  - DILATATION ATRIAL [None]
  - FATIGUE [None]
  - HYPERTENSION [None]
  - INFLUENZA [None]
  - MITRAL VALVE INCOMPETENCE [None]
  - MITRAL VALVE SCLEROSIS [None]
  - MULTIPLE SCLEROSIS [None]
  - PYREXIA [None]
  - VIRAL INFECTION [None]
